FAERS Safety Report 5213850-9 (Version None)
Quarter: 2007Q1

REPORT INFORMATION
  Report Type: 
  Country: None (occurrence: None)
  Receive Date: 20070117
  Receipt Date: 20070103
  Transmission Date: 20070707
  Serious: Yes (Hospitalization)
  Sender: FDA-Public Use
  Company Number: 234538

PATIENT
  Age: 54 Year
  Sex: Male

DRUGS (5)
  1. AVASTIN [Suspect]
     Indication: DRUG USE FOR UNKNOWN INDICATION
     Dosage: INTRAVENOUS
     Route: 042
  2. PANITUMUMAB (PANITUMUMAB) [Suspect]
     Indication: COLORECTAL CANCER
     Dosage: 6 MG/KG, INTRAVENOUS
     Route: 042
     Dates: start: 20051220
  3. LEUCOVORIN CALCIUM [Concomitant]
  4. OXALIPLATIN [Suspect]
     Indication: DRUG USE FOR UNKNOWN INDICATION
     Dosage: INTRAVENOUS
     Route: 042
  5. FLUOROURACIL [Suspect]
     Indication: DRUG USE FOR UNKNOWN INDICATION
     Dosage: INTRAVENOUS
     Route: 042

REACTIONS (3)
  - FEBRILE NEUTROPENIA [None]
  - HYPOMAGNESAEMIA [None]
  - WHITE BLOOD CELL COUNT DECREASED [None]
